FAERS Safety Report 15950122 (Version 1)
Quarter: 2019Q1

REPORT INFORMATION
  Report Type: Spontaneous
  Country: GB (occurrence: GB)
  Receive Date: 20190211
  Receipt Date: 20190211
  Transmission Date: 20190417
  Serious: Yes (Other)
  Sender: FDA-Public Use
  Company Number: GB-PFIZER INC-2019059331

PATIENT
  Age: 17 Year
  Sex: Male

DRUGS (1)
  1. XANAX [Suspect]
     Active Substance: ALPRAZOLAM
     Indication: ANXIETY

REACTIONS (12)
  - Aggression [Unknown]
  - Counterfeit product administered [Unknown]
  - Drug abuse [Unknown]
  - Suicidal ideation [Unknown]
  - Psychotic disorder [Unknown]
  - Dependence [Unknown]
  - Mental disorder [Not Recovered/Not Resolved]
  - Prescription drug used without a prescription [Unknown]
  - Hallucination, auditory [Not Recovered/Not Resolved]
  - Somnolence [Unknown]
  - Dissociation [Unknown]
  - Intentional overdose [Unknown]
